FAERS Safety Report 5818907-7 (Version None)
Quarter: 2008Q3

REPORT INFORMATION
  Report Type: 
  Country: None (occurrence: None)
  Receive Date: 20080721
  Receipt Date: 20080721
  Transmission Date: 20090109
  Serious: Yes (Disabling)
  Sender: FDA-Public Use
  Company Number: None

PATIENT
  Age: 56 Year
  Sex: Male
  Weight: 99.3377 kg

DRUGS (1)
  1. APIDRA [Suspect]
     Indication: INSULIN-REQUIRING TYPE 2 DIABETES MELLITUS
     Dosage: 5-7 UNITS WITH MEALS 3 TIMES PER DAY SQ
     Route: 058
     Dates: start: 20070501, end: 20080701

REACTIONS (2)
  - MUSCLE SPASMS [None]
  - MYALGIA [None]
